FAERS Safety Report 4355280-8 (Version None)
Quarter: 2004Q2

REPORT INFORMATION
  Report Type: 
  Country: None (occurrence: None)
  Receive Date: 20040510
  Receipt Date: 20040503
  Transmission Date: 20050107
  Serious: Yes (Death, Life-Threatening, Hospitalization)
  Sender: FDA-Public Use
  Company Number: US-BRISTOL-MYERS SQUIBB COMPANY-12577110

PATIENT
  Age: 84 Year
  Sex: Female
  Weight: 72 kg

DRUGS (1)
  1. ERBITUX [Suspect]
     Indication: COLORECTAL CANCER
     Dosage: 720 MG WAS TO BE INFUSED.
     Route: 042
     Dates: start: 20040428, end: 20040428

REACTIONS (2)
  - DEATH [None]
  - INFUSION RELATED REACTION [None]
